FAERS Safety Report 14987929 (Version 1)
Quarter: 2018Q2

REPORT INFORMATION
  Report Type: Spontaneous
  Country: US (occurrence: US)
  Receive Date: 20180608
  Receipt Date: 20180608
  Transmission Date: 20180711
  Serious: Yes (Hospitalization, Other)
  Sender: FDA-Public Use
  Company Number: US-APOTEX-2018AP015233

PATIENT
  Age: 34 Year
  Sex: Male

DRUGS (24)
  1. CARVEDILOL. [Suspect]
     Active Substance: CARVEDILOL
     Indication: MALIGNANT HYPERTENSION
     Dosage: 50 MG, BID
     Route: 048
  2. TERAZOSIN [Suspect]
     Active Substance: TERAZOSIN\TERAZOSIN HYDROCHLORIDE
     Indication: MALIGNANT HYPERTENSION
     Dosage: 2 MG, BID
     Route: 048
  3. FENTANYL. [Concomitant]
     Active Substance: FENTANYL
     Indication: DELIRIUM
     Route: 041
  4. FENTANYL. [Concomitant]
     Active Substance: FENTANYL
     Indication: AGITATION
  5. CYANOCOBALAMIN. [Concomitant]
     Active Substance: CYANOCOBALAMIN
     Indication: PRODUCT USED FOR UNKNOWN INDICATION
     Dosage: 500 ?G, PER DAY
     Route: 065
  6. MULTIVITAMIN                       /00097801/ [Concomitant]
     Active Substance: VITAMINS
     Indication: PRODUCT USED FOR UNKNOWN INDICATION
     Route: 065
  7. CARVEDILOL. [Suspect]
     Active Substance: CARVEDILOL
     Dosage: 25 MG, BID
     Route: 048
  8. HYDRALAZINE [Suspect]
     Active Substance: HYDRALAZINE HYDROCHLORIDE
     Indication: MALIGNANT HYPERTENSION
     Dosage: 100 MG, Q.6H
     Route: 048
  9. ISOSORBIDE DINITRATE. [Suspect]
     Active Substance: ISOSORBIDE DINITRATE
     Indication: MALIGNANT HYPERTENSION
     Dosage: 40 MG, BID
     Route: 048
  10. ISOSORBIDE DINITRATE. [Suspect]
     Active Substance: ISOSORBIDE DINITRATE
     Dosage: 60 MG, TID
     Route: 048
  11. NICARDIPINE [Concomitant]
     Active Substance: NICARDIPINE
     Indication: HYPERTENSION
     Dosage: 10-15 MG/HOUR
     Route: 041
  12. VALSARTAN. [Concomitant]
     Active Substance: VALSARTAN
     Dosage: 80 MG, BID
     Route: 048
  13. PROPOFOL. [Concomitant]
     Active Substance: PROPOFOL
     Indication: AGITATION
  14. CLONIDINE. [Suspect]
     Active Substance: CLONIDINE
     Dosage: 0.3 MG, Q.6H
     Route: 048
  15. CLONIDINE. [Suspect]
     Active Substance: CLONIDINE
     Dosage: 0.4 MG, Q.6H
     Route: 048
  16. METOPROLOL TARTRATE. [Suspect]
     Active Substance: METOPROLOL TARTRATE
     Indication: MALIGNANT HYPERTENSION
     Dosage: 100 MG, Q.6H
     Route: 048
  17. CLONIDINE. [Suspect]
     Active Substance: CLONIDINE
     Indication: MALIGNANT HYPERTENSION
     Dosage: 0.1-0.3 MG TWICE A DAY-EVERY SIX HOURS
     Route: 048
  18. CLONIDINE. [Suspect]
     Active Substance: CLONIDINE
     Dosage: 0.1 MG, TID
     Route: 048
  19. LABETALOL [Concomitant]
     Active Substance: LABETALOL\LABETALOL HYDROCHLORIDE
     Indication: HYPERTENSION
     Dosage: 3-4 MG/MINUTE
     Route: 042
  20. PROPOFOL. [Concomitant]
     Active Substance: PROPOFOL
     Indication: DELIRIUM
     Route: 041
  21. LISINOPRIL. [Concomitant]
     Active Substance: LISINOPRIL
     Indication: HYPERTENSION
     Dosage: 20 MG, PER DAY
     Route: 065
  22. AMLODIPINE [Suspect]
     Active Substance: AMLODIPINE BESYLATE
     Indication: MALIGNANT HYPERTENSION
     Dosage: 10 MG, QD
     Route: 048
  23. DILTIAZEM. [Suspect]
     Active Substance: DILTIAZEM
     Indication: MALIGNANT HYPERTENSION
     Dosage: 90 MG, TID
     Route: 048
  24. VALSARTAN. [Concomitant]
     Active Substance: VALSARTAN
     Indication: HYPERTENSION
     Dosage: 40 MG, SINGLE
     Route: 048

REACTIONS (1)
  - Treatment failure [Unknown]
